FAERS Safety Report 17318306 (Version 1)
Quarter: 2020Q1

REPORT INFORMATION
  Report Type: Spontaneous
  Country: GB (occurrence: GB)
  Receive Date: 20200124
  Receipt Date: 20200124
  Transmission Date: 20200409
  Serious: Yes (Disabling)
  Sender: FDA-Public Use
  Company Number: GB-MYLANLABS-2020M1007460

PATIENT
  Age: 32 Year
  Sex: Female
  Weight: 44 kg

DRUGS (5)
  1. METFORMIN [Concomitant]
     Active Substance: METFORMIN HYDROCHLORIDE
     Dosage: 1 DAILY FOR 7 DAYS AND THEN 1 TWICE DAILY.
     Dates: start: 20190711
  2. FERROUS SULFATE. [Concomitant]
     Active Substance: FERROUS SULFATE
     Dosage: 3 DOSAGE FORM, QD
     Dates: start: 20190827, end: 20190924
  3. PROCHLORPERAZINE. [Concomitant]
     Active Substance: PROCHLORPERAZINE
     Dosage: THREE TIMES DAILY
     Dates: start: 20191018
  4. TRANEXAMIC ACID. [Suspect]
     Active Substance: TRANEXAMIC ACID
     Indication: MENORRHAGIA
     Dosage: FOR UP TO 4 DAYS
     Dates: start: 20191001
  5. NORETHISTERONE [Concomitant]
     Active Substance: NORETHINDRONE
     Dosage: FOR 10 DAYS
     Dates: start: 20191028

REACTIONS (5)
  - Chest pain [Unknown]
  - Confusional state [Unknown]
  - Tremor [Recovered/Resolved]
  - Dizziness [Recovered/Resolved]
  - Malaise [Recovered/Resolved]

NARRATIVE: CASE EVENT DATE: 20191028
